FAERS Safety Report 4966514-0 (Version None)
Quarter: 2006Q2

REPORT INFORMATION
  Report Type: 
  Country: None (occurrence: None)
  Receive Date: 20060403
  Receipt Date: 20060320
  Transmission Date: 20061013
  Serious: Yes (Hospitalization, Other)
  Sender: FDA-Public Use
  Company Number: 2006039166

PATIENT
  Age: 69 Year
  Sex: Male
  Weight: 86.1834 kg

DRUGS (4)
  1. VIAGRA [Suspect]
     Indication: ERECTILE DYSFUNCTION
     Dosage: 25 MG (25 MG, 1 AS NECESSARY)
     Dates: start: 20040101
  2. FELDENE [Concomitant]
  3. ADVIL [Concomitant]
  4. BETAGAN [Concomitant]

REACTIONS (4)
  - CATARACT OPERATION [None]
  - ERECTILE DYSFUNCTION [None]
  - PROSTATE CANCER [None]
  - THERAPY NON-RESPONDER [None]
